FAERS Safety Report 22927104 (Version 3)
Quarter: 2023Q4

REPORT INFORMATION
  Report Type: Spontaneous
  Country: GH (occurrence: GH)
  Receive Date: 20230911
  Receipt Date: 20231013
  Transmission Date: 20240109
  Serious: Yes (Hospitalization)
  Sender: FDA-Public Use
  Company Number: GH-PFIZER INC-PV202300151971

PATIENT
  Age: 37 Year
  Sex: Male
  Weight: 88 kg

DRUGS (7)
  1. PAXLOVID [Suspect]
     Active Substance: NIRMATRELVIR\RITONAVIR
     Indication: COVID-19 treatment
     Dosage: 1 DF, 2X/DAY
     Route: 048
     Dates: start: 20230711, end: 20230716
  2. AZITHROMYCIN [Concomitant]
     Active Substance: AZITHROMYCIN
     Dosage: UNK
     Dates: start: 20230711
  3. CATAFLAM [DICLOFENAC DIETHYLAMINE] [Concomitant]
     Dosage: 50 MG, 2X/DAY (12 HOURLY FOR 5 DAYS)
     Route: 048
     Dates: start: 20230711
  4. NOSTAMINE [Concomitant]
     Dosage: UNK UNK, 3X/DAY (8 HOURLY FOR 7 DAYS)
     Route: 045
  5. ACETAMINOPHEN [Concomitant]
     Active Substance: ACETAMINOPHEN
     Dosage: 1 G, 3X/DAY (8 HOURLY FOR 5DAYS)
     Route: 048
  6. STREPSILS [AMYLMETACRESOL;DICHLOROBENZYL ALCOHOL] [Concomitant]
     Dosage: 1 DF, 4X/DAY (6 HOURLY)
     Route: 048
  7. ASCORBIC ACID\ZINC [Concomitant]
     Active Substance: ASCORBIC ACID\ZINC
     Dosage: 1 DF, 1X/DAY
     Route: 048
     Dates: start: 20230711

REACTIONS (2)
  - Abdominal pain [Recovered/Resolved]
  - Incorrect dose administered [Unknown]

NARRATIVE: CASE EVENT DATE: 20230715
